FAERS Safety Report 13835166 (Version 3)
Quarter: 2018Q4

REPORT INFORMATION
  Report Type: Spontaneous
  Country: US (occurrence: US)
  Receive Date: 20170804
  Receipt Date: 20181219
  Transmission Date: 20190204
  Serious: No
  Sender: FDA-Public Use
  Company Number: US-PFIZER INC-2017092125

PATIENT
  Age: 9 Year
  Sex: Male
  Weight: 22 kg

DRUGS (8)
  1. GENOTROPIN [Suspect]
     Active Substance: SOMATROPIN
     Dosage: 0.9 MG, ALTERNATE DAY (EVERY OTHER DAY)
     Route: 058
  2. GENOTROPIN [Suspect]
     Active Substance: SOMATROPIN
     Dosage: 0.8 MG, DAILY
     Route: 058
     Dates: start: 20131023, end: 201503
  3. GENOTROPIN [Suspect]
     Active Substance: SOMATROPIN
     Indication: GROWTH HORMONE DEFICIENCY
     Dosage: UNK, DAILY
  4. GENOTROPIN [Suspect]
     Active Substance: SOMATROPIN
     Dosage: UNK
     Dates: start: 201611
  5. GENOTROPIN [Suspect]
     Active Substance: SOMATROPIN
     Indication: BODY HEIGHT BELOW NORMAL
     Dosage: UNK, DAILY
     Dates: start: 20131023
  6. GENOTROPIN [Suspect]
     Active Substance: SOMATROPIN
     Dosage: 12 ML, UNK
  7. GENOTROPIN [Suspect]
     Active Substance: SOMATROPIN
     Dosage: 0.8 MG, ALTERNATE DAY (EVERY OTHER DAY)
     Route: 058
  8. GENOTROPIN [Suspect]
     Active Substance: SOMATROPIN
     Dosage: 0.8 MG, DAILY
     Route: 058
     Dates: start: 20170602

REACTIONS (10)
  - Product dose omission [Unknown]
  - Insulin-like growth factor decreased [Unknown]
  - Dizziness [Unknown]
  - Injection site pain [Unknown]
  - PCO2 increased [Unknown]
  - Incorrect dose administered [Unknown]
  - Blood urea decreased [Unknown]
  - Headache [Recovered/Resolved]
  - Arthralgia [Unknown]
  - Wrong device used [Unknown]

NARRATIVE: CASE EVENT DATE: 20170228
